FAERS Safety Report 15834761 (Version 1)
Quarter: 2019Q1

REPORT INFORMATION
  Report Type: Spontaneous
  Country: FR (occurrence: FR)
  Receive Date: 20190116
  Receipt Date: 20190116
  Transmission Date: 20190417
  Serious: Yes (Life-Threatening)
  Sender: FDA-Public Use
  Company Number: FR-MYLANLABS-2019M1003659

PATIENT
  Age: 3 Year
  Sex: Male
  Weight: 15 kg

DRUGS (5)
  1. SUFENTANIL MYLAN [Suspect]
     Active Substance: SUFENTANIL
     Indication: OESOPHAGOGASTRODUODENOSCOPY
     Dosage: 3 MICROGRAM, TOTAL
     Route: 042
  2. SUXAMETHONIUM [Suspect]
     Active Substance: SUCCINYLCHOLINE
     Indication: OESOPHAGOGASTRODUODENOSCOPY
     Dosage: 20 MILLIGRAM, TOTAL
     Route: 042
  3. PROPOFOL LIPURO [Concomitant]
     Active Substance: PROPOFOL
     Indication: OESOPHAGOGASTRODUODENOSCOPY
     Dosage: 800 MILLIGRAM, QD
     Route: 042
  4. DEXAMETHASONE MYLAN [Suspect]
     Active Substance: DEXAMETHASONE
     Indication: OESOPHAGOGASTRODUODENOSCOPY
     Dosage: 2 MILLIGRAM, TOTAL
     Route: 042
  5. SEVORANE [Concomitant]
     Active Substance: SEVOFLURANE
     Dosage: UNK
     Route: 042
     Dates: start: 20180617, end: 20180617

REACTIONS (1)
  - Anaphylactoid shock [Recovered/Resolved]

NARRATIVE: CASE EVENT DATE: 20180617
